FAERS Safety Report 4343424-3 (Version None)
Quarter: 2004Q2

REPORT INFORMATION
  Report Type: 
  Country: None (occurrence: None)
  Receive Date: 20040419
  Receipt Date: 20040413
  Transmission Date: 20050107
  Serious: Yes (Hospitalization)
  Sender: FDA-Public Use
  Company Number: STA-AE-04-MTX-156

PATIENT
  Age: 51 Year
  Sex: Female

DRUGS (6)
  1. METHOTREXATE [Suspect]
     Indication: RHEUMATOID ARTHRITIS
     Dosage: 7.5 MG 1X PER 1 WK, ORAL
     Route: 048
     Dates: start: 20020730, end: 20030709
  2. ARAVA [Suspect]
     Indication: RHEUMATOID ARTHRITIS
     Dosage: 20 MG 1X PER 1 DAY, ORAL
     Route: 048
     Dates: start: 20000802, end: 20030709
  3. OXAPROZIN [Suspect]
     Indication: RHEUMATOID ARTHRITIS
     Dosage: 0.6 G 2X PER 1 DAY, ORAL
     Route: 048
     Dates: start: 19920501, end: 20030709
  4. ZOLOFT [Concomitant]
  5. MAXZIDE [Concomitant]
  6. AVANDIA [Concomitant]

REACTIONS (1)
  - MYOCARDIAL INFARCTION [None]
